FAERS Safety Report 8259401-6 (Version None)
Quarter: 2012Q2

REPORT INFORMATION
  Report Type: 
  Country: None (occurrence: None)
  Receive Date: 20120404
  Receipt Date: 20120330
  Transmission Date: 20120825
  Serious: Yes (Hospitalization, Other)
  Sender: FDA-Public Use
  Company Number: US-AMGEN-USASP2012020531

PATIENT
  Age: 73 Year
  Sex: Female

DRUGS (8)
  1. GABAPENTIN [Concomitant]
     Dosage: UNK
  2. PLAVIX [Concomitant]
     Dosage: UNK
  3. LYRICA [Concomitant]
     Dosage: UNK
  4. REQUIP [Concomitant]
     Dosage: UNK
  5. CYMBALTA [Concomitant]
     Dosage: UNK
  6. AVAPRO [Concomitant]
     Dosage: UNK
  7. EPOGEN [Suspect]
     Indication: RENAL FAILURE CHRONIC
     Dosage: 5000 IU, QWK
  8. SENSIPAR [Suspect]
     Indication: HYPERPARATHYROIDISM SECONDARY
     Dosage: 90 MG, QD

REACTIONS (3)
  - ENDOTRACHEAL INTUBATION [None]
  - GASTROINTESTINAL TUBE INSERTION [None]
  - HOSPITALISATION [None]
